FAERS Safety Report 21867187 (Version 2)
Quarter: 2023Q1

REPORT INFORMATION
  Report Type: Report from Study
  Country: ES (occurrence: ES)
  Receive Date: 20230116
  Receipt Date: 20230208
  Transmission Date: 20230417
  Serious: Yes (Death, Life-Threatening, Hospitalization)
  Sender: FDA-Public Use
  Company Number: ES-AstraZeneca-2022A375595

PATIENT
  Age: 52 Year
  Sex: Female
  Weight: 60.2 kg

DRUGS (12)
  1. FAM-TRASTUZUMAB DERUXTECAN-NXKI [Suspect]
     Active Substance: FAM-TRASTUZUMAB DERUXTECAN-NXKI
     Indication: Breast cancer metastatic
     Dosage: 5.4 MG/KG, ONCE EVERY 3 WK
     Route: 042
     Dates: start: 20220225, end: 20220428
  2. FAM-TRASTUZUMAB DERUXTECAN-NXKI [Suspect]
     Active Substance: FAM-TRASTUZUMAB DERUXTECAN-NXKI
     Dosage: 4.4 MG/KG, ONCE EVERY 3 WK
     Route: 042
     Dates: start: 20220519, end: 20221021
  3. SUMATRIPTAN SUCCINATE [Concomitant]
     Active Substance: SUMATRIPTAN SUCCINATE
     Indication: Headache
     Dosage: UNK
     Route: 048
  4. PROPANOLOL [PROPRANOLOL HYDROCHLORIDE] [Concomitant]
     Indication: Headache
     Dosage: 20 MG, BID
     Route: 048
  5. ONDANSETRON [Concomitant]
     Active Substance: ONDANSETRON
     Indication: Nausea
     Dosage: 8 MG
     Route: 048
     Dates: start: 20220225
  6. FOSAPREPITANT [Concomitant]
     Active Substance: FOSAPREPITANT
     Indication: Chemotherapy
     Dosage: 150 MG
     Route: 042
     Dates: start: 20220317
  7. OMEPRAZOLE [Concomitant]
     Active Substance: OMEPRAZOLE
     Indication: Dyspepsia
     Dosage: 20 MG, QD
     Route: 048
     Dates: start: 20221004
  8. FERRIC AMMONIUM CITRATE;FOLIC ACID;LYSINE;VITAMIN B COMPLEX [Concomitant]
     Indication: Blood folate decreased
     Dosage: 5 MG
     Route: 048
     Dates: start: 20211004
  9. ROSUVASTATIN CALCIUM [Concomitant]
     Active Substance: ROSUVASTATIN CALCIUM
     Indication: Blood cholesterol
     Dosage: 10 MG
     Route: 048
     Dates: start: 20220328
  10. MAGNESIUM [Concomitant]
     Active Substance: MAGNESIUM
     Indication: Hypomagnesaemia
     Dosage: UNK
     Route: 048
     Dates: start: 20220901
  11. (6S)-5-METHYLTETRAHYDROFOLATE GLUCOSAMINE;ACETYLCYSTEINE;MECOBALAMIN;P [Concomitant]
     Indication: Hypokalaemia
     Dosage: UNK
     Route: 048
     Dates: start: 20220922
  12. DEXAMETHASONE [Concomitant]
     Active Substance: DEXAMETHASONE
     Indication: Chemotherapy
     Dosage: 12 MG, ONCE EVERY 3 WK
     Route: 048
     Dates: start: 20220225

REACTIONS (1)
  - Pneumonia [Fatal]

NARRATIVE: CASE EVENT DATE: 20221008
